FAERS Safety Report 6913354-9 (Version None)
Quarter: 2010Q3

REPORT INFORMATION
  Report Type: 
  Country: None (occurrence: None)
  Receive Date: 20100809
  Receipt Date: 20100728
  Transmission Date: 20110219
  Serious: Yes (Hospitalization)
  Sender: FDA-Public Use
  Company Number: US-JNJFOC-20100800088

PATIENT
  Sex: Male
  Weight: 35.56 kg

DRUGS (4)
  1. INFLIXIMAB, RECOMBINANT [Suspect]
     Indication: INFLAMMATORY BOWEL DISEASE
     Route: 042
  2. MERCAPTOPURINE [Concomitant]
  3. PREDNISONE [Concomitant]
  4. MULTI-VITAMINS [Concomitant]

REACTIONS (1)
  - ABDOMINAL PAIN [None]
